FAERS Safety Report 9203604 (Version 1)
Quarter: 2013Q1

REPORT INFORMATION
  Report Type: Spontaneous
  Country: DE (occurrence: None)
  Receive Date: 20130329
  Receipt Date: 20130329
  Transmission Date: 20140127
  Serious: Yes (Hospitalization)
  Sender: FDA-Public Use
  Company Number: GER/GER/13/0028741

PATIENT
  Age: 70 Year
  Sex: Female
  Weight: 70 kg

DRUGS (2)
  1. GEMCITABINE [Suspect]
     Indication: OVARIAN CANCER
     Dosage: 1750 MG INTRAVENOUS
  2. CARBO-CELL [Suspect]
     Indication: OVARIAN CANCER
     Dosage: INTRAVENOUS

REACTIONS (6)
  - Blood pressure increased [None]
  - Body temperature increased [None]
  - Dyspnoea [None]
  - Local swelling [None]
  - Rash [None]
  - Tachycardia [None]
